FAERS Safety Report 4741535-1 (Version None)
Quarter: 2005Q3

REPORT INFORMATION
  Report Type: 
  Country: None (occurrence: None)
  Receive Date: 20050808
  Receipt Date: 20050725
  Transmission Date: 20060218
  Serious: Yes (Disabling)
  Sender: FDA-Public Use
  Company Number: 216376

PATIENT
  Age: 63 Year
  Sex: Male

DRUGS (14)
  1. RITUXAN [Suspect]
     Indication: NON-HODGKIN'S LYMPHOMA
     Dosage: 500 MG, INTRAVENOUS
     Route: 042
     Dates: start: 20050322, end: 20050322
  2. CYCLOPHOSPHAMIDE [Suspect]
     Indication: NON-HODGKIN'S LYMPHOMA
     Dosage: 500 MG, INTRAVENOUS
     Route: 042
     Dates: start: 20050224, end: 20050323
  3. FARMORUBICIN (EPIRUBICIN HYDROCHLORIDE) [Suspect]
     Indication: NON-HODGKIN'S LYMPHOMA
     Dosage: 20 MG, INTRAVENOUS
     Route: 042
     Dates: start: 20050224, end: 20050323
  4. ONCOVIN [Suspect]
     Indication: NON-HODGKIN'S LYMPHOMA
     Dosage: 1 MG, INTRAVENOUS
     Route: 042
     Dates: start: 20050224, end: 20050323
  5. PREDONINE (PREDNISOLONE, PREDNISOLONE ACETATE, PREDNISOLONE SODIUM SUC [Suspect]
     Indication: NON-HODGKIN'S LYMPHOMA
     Dosage: 100 MG, ORAL
     Route: 048
     Dates: start: 20050314, end: 20050323
  6. SEROTONE (AZASETRON HYDROCHLORIDE) [Concomitant]
  7. PRIMERAN (METOCLOPRAMIDE HYDROCHLORIDE) [Concomitant]
  8. ALBUMIN (HUMAN) [Concomitant]
  9. HYDROCORTONE (HYDROCORTISONE) [Concomitant]
  10. BLUTAL (JAPAN) (CHONDROITIN SULFATE, IRON NOS) [Concomitant]
  11. SULPERAZON (JAPAN) (SULBACTAM SODIUM, AMPICILLIN) [Concomitant]
  12. DUROTEP (FENTANYL CITRATE) [Concomitant]
  13. OMEPRAZEN (OMEPRAZOLE) [Concomitant]
  14. NEU-UP (JAPAN) (NARTOGRASTIM) [Concomitant]

REACTIONS (10)
  - DEMENTIA [None]
  - DEPRESSION [None]
  - MALAISE [None]
  - NEOPLASM [None]
  - PANCREATIC DISORDER [None]
  - PLATELET COUNT DECREASED [None]
  - PYREXIA [None]
  - RESTLESSNESS [None]
  - URINARY INCONTINENCE [None]
  - WHITE BLOOD CELL COUNT DECREASED [None]
